FAERS Safety Report 8555982-3 (Version None)
Quarter: 2012Q3

REPORT INFORMATION
  Report Type: 
  Country: None (occurrence: None)
  Receive Date: 20120801
  Receipt Date: 20101108
  Transmission Date: 20120928
  Serious: Yes (Hospitalization, Other)
  Sender: FDA-Public Use
  Company Number: US-BAYER-201029476NA

PATIENT
  Age: 31 Year
  Sex: Female
  Weight: 78.182 kg

DRUGS (9)
  1. WELLBUTRIN XL [Concomitant]
     Indication: EX-TOBACCO USER
     Dosage: 150 MG 24 HR TAB
     Route: 048
  2. MULTI-VITAMINS [Concomitant]
     Indication: VITAMIN SUPPLEMENTATION
     Dosage: 06 MG-1 MG CAP DAILY
     Route: 048
  3. SINGULAIR [Concomitant]
     Indication: ASTHMA
     Route: 048
     Dates: start: 20060101
  4. PRILOSEC [Concomitant]
     Indication: GASTROOESOPHAGEAL REFLUX DISEASE
     Route: 048
     Dates: start: 20080401
  5. FLEXERIL [Concomitant]
     Route: 048
     Dates: start: 20080401
  6. MULTI-VITAMIN [Concomitant]
     Dosage: 06 MG-1 MG CAP DAILY
     Route: 048
  7. MICRONOR [Concomitant]
  8. YAZ [Suspect]
     Route: 048
     Dates: start: 20010201, end: 20090715
  9. COLACE [Concomitant]
     Indication: CONSTIPATION PROPHYLAXIS
     Route: 048

REACTIONS (6)
  - THROMBOSIS [None]
  - CHOLELITHIASIS [None]
  - HYDROCHOLECYSTIS [None]
  - ABDOMINAL PAIN [None]
  - BILIARY COLIC [None]
  - CHOLECYSTITIS ACUTE [None]
